FAERS Safety Report 9370955 (Version 1)
Quarter: 2013Q2

REPORT INFORMATION
  Report Type: Spontaneous
  Country: ES (occurrence: ES)
  Receive Date: 20130627
  Receipt Date: 20130627
  Transmission Date: 20140414
  Serious: Yes (Death, Hospitalization, Other)
  Sender: FDA-Public Use
  Company Number: ES-009507513-1306ESP010063

PATIENT
  Age: 34 Year
  Sex: Male

DRUGS (4)
  1. JANUMET [Suspect]
     Indication: HYPERGLYCAEMIA
     Dosage: BID (2/24H)
     Route: 048
     Dates: start: 20110630, end: 20110923
  2. JANUVIA [Suspect]
     Indication: HYPERGLYCAEMIA
     Dosage: 1/24 HOURS. NOT KNOWN THE PRESCRIBED PACK SIZE.
     Route: 048
     Dates: start: 201204, end: 201207
  3. LANTUS [Suspect]
     Indication: HYPERGLYCAEMIA
     Dosage: 12 U A 18 U
     Route: 058
     Dates: start: 20110401, end: 201106
  4. METFORMIN [Suspect]
     Indication: HYPERGLYCAEMIA
     Dosage: THE PATIENT STARTED WITH 1/2 TO THREE DAILY UNTIL 06/2011. ON 09/2011 2/24H UNTIL 04/2012.
     Route: 048
     Dates: start: 20110419, end: 201204

REACTIONS (2)
  - Colon cancer stage IV [Fatal]
  - Abdominal pain [Recovered/Resolved]
